FAERS Safety Report 14846895 (Version 1)
Quarter: 2018Q2

REPORT INFORMATION
  Report Type: Spontaneous
  Country: US (occurrence: US)
  Receive Date: 20180504
  Receipt Date: 20180504
  Transmission Date: 20180711
  Serious: Yes (Hospitalization)
  Sender: FDA-Public Use
  Company Number: US-PFIZER INC-2018182442

PATIENT
  Age: 85 Year
  Sex: Male

DRUGS (2)
  1. DILANTIN [Suspect]
     Active Substance: PHENYTOIN
     Indication: SEIZURE
     Dosage: 200 MG, 1X/DAY
     Route: 048
  2. CRESTOR [Concomitant]
     Active Substance: ROSUVASTATIN CALCIUM
     Dosage: UNK

REACTIONS (9)
  - Seizure [Unknown]
  - Weight decreased [Unknown]
  - Dysphagia [Unknown]
  - Disease recurrence [Unknown]
  - Gastrooesophageal reflux disease [Recovered/Resolved]
  - Middle insomnia [Recovering/Resolving]
  - Anticonvulsant drug level increased [Recovering/Resolving]
  - Somnolence [Recovering/Resolving]
  - Asthenia [Unknown]

NARRATIVE: CASE EVENT DATE: 201712
